FAERS Safety Report 7265287-9 (Version None)
Quarter: 2011Q1

REPORT INFORMATION
  Report Type: 
  Country: None (occurrence: None)
  Receive Date: 20110131
  Receipt Date: 20110126
  Transmission Date: 20110831
  Serious: Yes (Hospitalization)
  Sender: FDA-Public Use
  Company Number: FR-PFIZER INC-2010095703

PATIENT
  Age: 50 Year
  Sex: Female

DRUGS (13)
  1. CEFPODOXIME PROXETIL [Suspect]
     Indication: TONSILLITIS
     Dosage: 100 MG, UNK
     Route: 048
     Dates: start: 20100705, end: 20100708
  2. CORTANCYL [Concomitant]
     Dosage: UNK
  3. UVEDOSE [Concomitant]
     Dosage: 100000 IU, EVERY 15 DAYS
  4. CELLCEPT [Suspect]
     Indication: RENAL TRANSPLANT
     Dosage: 1 G, 2X/DAY
     Route: 048
  5. NEORAL [Concomitant]
     Dosage: UNK
  6. TARDYFERON [Concomitant]
     Dosage: TWO TABLETS DAILY
  7. INIPOMP [Suspect]
     Dosage: 20 MG, 1X/DAY
     Route: 048
     Dates: end: 20100708
  8. TENORMIN [Concomitant]
     Dosage: UNK
  9. EUPRESSYL [Concomitant]
     Dosage: UNK
  10. ELISOR [Concomitant]
     Dosage: UNK
  11. LYRICA [Suspect]
     Dosage: 150 MG, 2X/DAY
     Route: 048
     Dates: end: 20100708
  12. CELLCEPT [Suspect]
     Dosage: 75 MG, 2X/DAY
     Route: 048
  13. APROVEL [Concomitant]
     Dosage: UNK

REACTIONS (1)
  - NEUTROPENIA [None]
